FAERS Safety Report 16075279 (Version 1)
Quarter: 2019Q1

REPORT INFORMATION
  Report Type: Spontaneous
  Country: US (occurrence: US)
  Receive Date: 20190315
  Receipt Date: 20190315
  Transmission Date: 20190418
  Serious: Yes (Hospitalization)
  Sender: FDA-Public Use
  Company Number: PHEH2019US010840

PATIENT
  Age: 23 Year
  Sex: Male
  Weight: 56.8 kg

DRUGS (1)
  1. KYMRIAH [Suspect]
     Active Substance: TISAGENLECLEUCEL
     Indication: ACUTE LYMPHOCYTIC LEUKAEMIA
     Dosage: 1.0 X 10E8
     Route: 042
     Dates: start: 20180102

REACTIONS (3)
  - Cytokine release syndrome [Recovered/Resolved]
  - Pyrexia [Unknown]
  - Streptococcal infection [Recovered/Resolved]

NARRATIVE: CASE EVENT DATE: 20180105
